FAERS Safety Report 6348854-6 (Version None)
Quarter: 2009Q3

REPORT INFORMATION
  Report Type: 
  Country: None (occurrence: None)
  Receive Date: 20090911
  Receipt Date: 20090902
  Transmission Date: 20100115
  Serious: Yes (Hospitalization)
  Sender: FDA-Public Use
  Company Number: JP-PFIZER INC-2009264737

PATIENT

DRUGS (2)
  1. ZITHROMAX [Suspect]
  2. TEGAFUR/GIMERACIL/OTERACIL POTASSIUM [Suspect]

REACTIONS (1)
  - NEPHROTIC SYNDROME [None]
